FAERS Safety Report 5641954-5 (Version None)
Quarter: 2008Q1

REPORT INFORMATION
  Report Type: 
  Country: None (occurrence: None)
  Receive Date: 20080225
  Receipt Date: 20080214
  Transmission Date: 20080703
  Serious: Yes (Life-Threatening, Hospitalization)
  Sender: FDA-Public Use
  Company Number: CLOF-1000089

PATIENT
  Age: 66 Year

DRUGS (2)
  1. CLOFARABINE (CLOFARABINE) SOLUTION FOR INFUSION [Suspect]
     Indication: MYELOID LEUKAEMIA
     Dosage: INTRAVENOUS
     Route: 042
     Dates: end: 20071001
  2. DAUNORUBICIN HCL [Suspect]
     Indication: MYELOID LEUKAEMIA
     Dosage: INTRAVENOUS
     Route: 042
     Dates: end: 20071001

REACTIONS (1)
  - VENOUS THROMBOSIS [None]
